FAERS Safety Report 5747162-1 (Version None)
Quarter: 2008Q2

REPORT INFORMATION
  Report Type: 
  Country: None (occurrence: None)
  Receive Date: 20080520
  Receipt Date: 20080507
  Transmission Date: 20081010
  Serious: No
  Sender: FDA-Public Use
  Company Number: APP200800357

PATIENT
  Age: 49 Year
  Sex: Female
  Weight: 59.8748 kg

DRUGS (2)
  1. NAROPIN [Suspect]
     Indication: GENERAL ANAESTHESIA
     Dosage: 30 ML, ONCE, INJECTION
     Dates: start: 20080506, end: 20080506
  2. LIDOCAINE [Concomitant]

REACTIONS (4)
  - BLOOD PRESSURE INCREASED [None]
  - CONVULSION [None]
  - ELECTROCARDIOGRAM QT PROLONGED [None]
  - UNRESPONSIVE TO STIMULI [None]
